FAERS Safety Report 4746104-5 (Version None)
Quarter: 2005Q3

REPORT INFORMATION
  Report Type: 
  Country: None (occurrence: None)
  Receive Date: 20050816
  Receipt Date: 20021201
  Transmission Date: 20060218
  Serious: Yes (Other)
  Sender: FDA-Public Use
  Company Number: US-BRISTOL-MYERS SQUIBB COMPANY-13027305

PATIENT

DRUGS (2)
  1. PARAPLATIN [Suspect]
     Indication: NON-SMALL CELL LUNG CANCER
  2. TAXOTERE [Suspect]
     Indication: NON-SMALL CELL LUNG CANCER

REACTIONS (1)
  - OPTIC NEURITIS [None]
